FAERS Safety Report 8081165-X (Version None)
Quarter: 2012Q1

REPORT INFORMATION
  Report Type: 
  Country: None (occurrence: None)
  Receive Date: 20120130
  Receipt Date: 20120125
  Transmission Date: 20120608
  Serious: Yes (Hospitalization)
  Sender: FDA-Public Use
  Company Number: US-GLAXOSMITHKLINE-B0718297A

PATIENT
  Age: 59 Year
  Sex: Male

DRUGS (6)
  1. LORATADINE [Concomitant]
  2. RANITIDINE [Concomitant]
  3. GLYBURIDE [Concomitant]
  4. AVANDIA [Suspect]
     Indication: DIABETES MELLITUS
     Dosage: 8MG PER DAY
     Route: 048
     Dates: start: 20030101, end: 20090601
  5. ATENOLOL [Concomitant]
  6. LISINOPRIL [Concomitant]

REACTIONS (2)
  - CORONARY ARTERY DISEASE [None]
  - ARRHYTHMIA [None]
